FAERS Safety Report 25751690 (Version 1)
Quarter: 2025Q3

REPORT INFORMATION
  Report Type: Spontaneous
  Country: US (occurrence: None)
  Receive Date: 20250902
  Receipt Date: 20250902
  Transmission Date: 20251021
  Serious: Yes (Hospitalization)
  Sender: FDA-CTU
  Company Number: None

PATIENT
  Sex: Female

DRUGS (6)
  1. LENALIDOMIDE [Suspect]
     Active Substance: LENALIDOMIDE
     Indication: Plasma cell myeloma
     Dosage: 5 MG DAILY ORAL ?
     Route: 048
     Dates: start: 20250710, end: 20250803
  2. PANTOPRAZOLE [Concomitant]
     Active Substance: PANTOPRAZOLE
  3. DARZALEX [Concomitant]
     Active Substance: DARATUMUMAB
  4. METOPROLOL [Concomitant]
     Active Substance: METOPROLOL
  5. LASIX [Concomitant]
     Active Substance: FUROSEMIDE
  6. MEROPENEM [Concomitant]
     Active Substance: MEROPENEM

REACTIONS (2)
  - Cystitis [None]
  - Haematological infection [None]
